FAERS Safety Report 15151274 (Version 1)
Quarter: 2018Q3

REPORT INFORMATION
  Report Type: Spontaneous
  Country: US (occurrence: US)
  Receive Date: 20180716
  Receipt Date: 20180716
  Transmission Date: 20181010
  Serious: Yes (Death)
  Sender: FDA-Public Use
  Company Number: US-BAUSCH-BL-2018-019506

PATIENT
  Age: 72 Year
  Sex: Male

DRUGS (2)
  1. LACTULOSE. [Concomitant]
     Active Substance: LACTULOSE
     Indication: PRODUCT USED FOR UNKNOWN INDICATION
     Route: 048
  2. XIFAXAN [Suspect]
     Active Substance: RIFAXIMIN
     Indication: HEPATIC CIRRHOSIS
     Dosage: A COUPLE OF MONTHS AGO
     Route: 048
     Dates: start: 2018, end: 2018

REACTIONS (3)
  - Dyspnoea [Unknown]
  - Death [Fatal]
  - Sinus disorder [Unknown]

NARRATIVE: CASE EVENT DATE: 20180707
